FAERS Safety Report 9991891 (Version 1)
Quarter: 2014Q1

REPORT INFORMATION
  Report Type: Spontaneous
  Country: US (occurrence: US)
  Receive Date: 20140310
  Receipt Date: 20140310
  Transmission Date: 20141002
  Serious: Yes (Other)
  Sender: FDA-Public Use
  Company Number: US-JNJFOC-20140300137

PATIENT
  Age: 68 Year
  Sex: Male
  Weight: 73.03 kg

DRUGS (2)
  1. PANCREAZE DR [Suspect]
     Indication: PANCREATITIS
     Route: 048
  2. INSULIN [Concomitant]
     Indication: DIABETES MELLITUS
     Route: 065
     Dates: start: 1982

REACTIONS (5)
  - Cataract [Recovered/Resolved]
  - Drug dose omission [Unknown]
  - Weight decreased [Not Recovered/Not Resolved]
  - Hypermetropia [Not Recovered/Not Resolved]
  - Flatulence [Not Recovered/Not Resolved]
